FAERS Safety Report 7800431-3 (Version None)
Quarter: 2011Q4

REPORT INFORMATION
  Report Type: 
  Country: None (occurrence: None)
  Receive Date: 20111006
  Receipt Date: 20110928
  Transmission Date: 20120403
  Serious: Yes (Hospitalization)
  Sender: FDA-Public Use
  Company Number: US-CELGENEUS-163-21880-11093584

PATIENT
  Sex: Male
  Weight: 71.4 kg

DRUGS (18)
  1. REVLIMID [Suspect]
     Indication: NON-HODGKIN'S LYMPHOMA
     Dosage: 20 MILLIGRAM
     Route: 048
     Dates: start: 20110214, end: 20110403
  2. MIRALAX [Concomitant]
     Route: 065
  3. PERCOCET [Concomitant]
     Indication: PAIN
     Dosage: 1
     Route: 065
     Dates: start: 20110410
  4. LORTAB [Concomitant]
     Route: 065
  5. MULTI-VITAMINS [Concomitant]
     Route: 065
  6. MOM [Concomitant]
     Dosage: HALF DOSE
     Route: 048
     Dates: start: 20110416
  7. PRILOSEC [Concomitant]
     Route: 065
  8. ASPIRIN [Concomitant]
     Dosage: 81 MILLIGRAM
     Route: 065
  9. LAXATIVE [Concomitant]
     Route: 065
  10. OXYCODONE HCL [Concomitant]
     Indication: PAIN
     Route: 065
  11. VISTARIL [Concomitant]
     Dosage: 50 MILLIGRAM
     Route: 030
  12. LEVAQUIN [Concomitant]
     Indication: COUGH
     Route: 065
  13. FLUIDS [Concomitant]
     Indication: DEHYDRATION
     Route: 041
     Dates: start: 20110418
  14. PREDNISONE [Concomitant]
     Route: 065
  15. VITAMIN D [Concomitant]
     Route: 065
  16. NORMAL SALINE WITH POTASSIUM [Concomitant]
     Dosage: 20 OF KCL
     Route: 041
     Dates: start: 20110416
  17. HYDROMORPHONE HCL [Concomitant]
     Dosage: 2 MILLIGRAM
     Route: 030
  18. POTASSIUM [Concomitant]
     Route: 065

REACTIONS (1)
  - HEPATITIS [None]
